FAERS Safety Report 10612639 (Version 1)
Quarter: 2014Q4

REPORT INFORMATION
  Report Type: Spontaneous
  Country: GB (occurrence: GB)
  Receive Date: 20141127
  Receipt Date: 20141127
  Transmission Date: 20150529
  Serious: Yes (Disabling)
  Sender: FDA-Public Use
  Company Number: GB-RANBAXY-2014RR-88827

PATIENT
  Age: 55 Year
  Sex: Male

DRUGS (2)
  1. SIMVASTATIN. [Suspect]
     Active Substance: SIMVASTATIN
     Indication: BLOOD CHOLESTEROL INCREASED
     Dosage: UNK
     Route: 048
  2. CRESTOR [Concomitant]
     Active Substance: ROSUVASTATIN CALCIUM
     Indication: PRODUCT USED FOR UNKNOWN INDICATION
     Dosage: UNK
     Route: 065

REACTIONS (12)
  - Balance disorder [Unknown]
  - Psychiatric symptom [Unknown]
  - Tenderness [Unknown]
  - Drug intolerance [Unknown]
  - Impaired work ability [Unknown]
  - Fatigue [Unknown]
  - Frustration [Unknown]
  - Asthenia [Unknown]
  - Feeling abnormal [Unknown]
  - Self esteem decreased [Unknown]
  - Myalgia [Unknown]
  - Activities of daily living impaired [Unknown]
